FAERS Safety Report 7182730-4 (Version None)
Quarter: 2010Q4

REPORT INFORMATION
  Report Type: 
  Country: None (occurrence: None)
  Receive Date: 20101221
  Receipt Date: 20100623
  Transmission Date: 20110411
  Serious: No
  Sender: FDA-Public Use
  Company Number: US-AMGEN-KDL410434

PATIENT

DRUGS (4)
  1. ENBREL [Suspect]
     Dosage: 25 MG, 2 TIMES/WK
     Route: 064
     Dates: start: 20050310, end: 20090612
  2. FENUGREEK [Concomitant]
     Dosage: UNK UNK, UNK
     Route: 063
     Dates: start: 20100608
  3. NORETHISTERONE [Concomitant]
     Dosage: UNK UNK, UNK
     Route: 063
     Dates: start: 20100515
  4. PRENATAL [Concomitant]
     Dosage: UNK UNK, UNK
     Route: 064
     Dates: start: 20090406

REACTIONS (1)
  - REFLUX OESOPHAGITIS [None]
